FAERS Safety Report 4635822-5 (Version None)
Quarter: 2005Q2

REPORT INFORMATION
  Report Type: 
  Country: None (occurrence: None)
  Receive Date: 20050415
  Receipt Date: 20050405
  Transmission Date: 20051028
  Serious: Yes (Life-Threatening, Hospitalization, Other)
  Sender: FDA-Public Use
  Company Number: JP-JNJFOC-20040807221

PATIENT
  Sex: Female
  Weight: 57.9 kg

DRUGS (17)
  1. REMICADE [Suspect]
     Route: 042
  2. REMICADE [Suspect]
     Route: 042
  3. REMICADE [Suspect]
     Route: 042
  4. REMICADE [Suspect]
     Route: 042
  5. REMICADE [Suspect]
     Route: 042
  6. REMICADE [Suspect]
     Route: 042
  7. REMICADE [Suspect]
     Indication: RHEUMATOID ARTHRITIS
     Dosage: 11/ILLEGIBLE/2001
     Route: 042
  8. METHOTREXATE [Concomitant]
  9. METHOTREXATE [Concomitant]
     Dosage: 2-4 MG/WEEK
  10. PREDNISOLONE [Concomitant]
     Indication: RHEUMATOID ARTHRITIS
     Route: 049
  11. MOBIC [Concomitant]
     Indication: RHEUMATOID ARTHRITIS
     Route: 049
  12. LAFUTIDINE [Concomitant]
  13. PROTECADIN [Concomitant]
     Route: 049
  14. PROTECADIN [Concomitant]
     Route: 049
  15. JUVELA N [Concomitant]
     Route: 049
  16. VITANEURIN [Concomitant]
     Indication: VITAMIN SUPPLEMENTATION
     Route: 049
  17. MUCOSOLVAN [Concomitant]
     Indication: CHRONIC SINUSITIS
     Route: 049

REACTIONS (11)
  - CHILLS [None]
  - CYANOSIS [None]
  - DYSPNOEA [None]
  - FEELING ABNORMAL [None]
  - HEAD DISCOMFORT [None]
  - HYPOXIA [None]
  - INFUSION RELATED REACTION [None]
  - MALAISE [None]
  - PYREXIA [None]
  - RESPIRATORY DISTRESS [None]
  - URTICARIA [None]
